FAERS Safety Report 8162302-5 (Version None)
Quarter: 2012Q1

REPORT INFORMATION
  Report Type: 
  Country: None (occurrence: None)
  Receive Date: 20120103
  Receipt Date: 20111001
  Transmission Date: 20120608
  Serious: No
  Sender: FDA-Public Use
  Company Number: AE-2011-001959

PATIENT
  Age: 63 Year
  Sex: Female
  Weight: 84.8226 kg

DRUGS (3)
  1. RIBAVIRIN [Concomitant]
  2. PEGASYS [Suspect]
  3. INCIVEK [Suspect]
     Dosage: (3 IN 1 D), ORAL
     Route: 048
     Dates: start: 20110806

REACTIONS (1)
  - ABDOMINAL PAIN UPPER [None]
